FAERS Safety Report 6159273-X (Version None)
Quarter: 2009Q2

REPORT INFORMATION
  Report Type: 
  Country: None (occurrence: None)
  Receive Date: 20090417
  Receipt Date: 20090416
  Transmission Date: 20091009
  Serious: Yes (Hospitalization)
  Sender: FDA-Public Use
  Company Number: US-BRISTOL-MYERS SQUIBB COMPANY-14590905

PATIENT
  Age: 84 Year
  Sex: Female

DRUGS (2)
  1. COUMADIN [Suspect]
  2. PLAVIX [Suspect]
     Indication: THROMBOSIS
     Dosage: STRENGTH 75MG
     Route: 048
     Dates: start: 20020101

REACTIONS (2)
  - DEEP VEIN THROMBOSIS [None]
  - DYSPNOEA [None]
